FAERS Safety Report 7185125-2 (Version None)
Quarter: 2010Q4

REPORT INFORMATION
  Report Type: 
  Country: None (occurrence: None)
  Receive Date: 20101222
  Receipt Date: 20100529
  Transmission Date: 20110411
  Serious: No
  Sender: FDA-Public Use
  Company Number: US-AMGEN-TCS415583

PATIENT

DRUGS (23)
  1. ENBREL [Suspect]
     Indication: RHEUMATOID ARTHRITIS
     Dosage: 50 MG, QWK
     Route: 058
     Dates: start: 20100506
  2. METHOTREXATE [Concomitant]
     Dosage: 2.5 MG, QD
  3. LANSOPRAZOLE [Concomitant]
     Dosage: 30 MG, QD
     Route: 048
  4. ATORVASTATIN CALCIUM [Concomitant]
     Dosage: 40 MG, QD
     Route: 048
  5. TRIAMTERENE AND HYDROCHLOROTHIAZIDE [Concomitant]
     Dosage: UNK UNK, QD
     Route: 048
  6. PROPOXYPHENE NAPSYLATE [Concomitant]
     Dosage: UNK UNK, UNK
     Route: 048
  7. HYOSCYAMINE SULFATE [Concomitant]
     Dosage: .375 MG, BID
     Route: 048
  8. FLUTICASONE/SALMETEROL [Concomitant]
     Dosage: UNK UNK, BID
  9. AZELASTINE HCL [Concomitant]
     Dosage: 137 A?G, BID
     Route: 045
  10. FLUTICASONE PROPIONATE [Concomitant]
     Dosage: 50 A?G, UNK
     Route: 045
  11. TRILEPTAL [Concomitant]
     Dosage: 300 MG, UNK
     Route: 048
  12. BUMETANIDE [Concomitant]
     Dosage: 1 MG, PRN
  13. POTASSIUM CHLORIDE [Concomitant]
     Dosage: 10 MEQ, UNK
     Route: 048
  14. METOLAZONE [Concomitant]
     Dosage: 2.5 MG, UNK
     Route: 048
  15. MULTI-VITAMINS [Concomitant]
     Dosage: UNK UNK, QD
     Route: 048
  16. CALCIUM WITH VITAMIN D [Concomitant]
     Dosage: UNK UNK, BID
     Route: 048
  17. GLUCOSAMINE SULFATE [Concomitant]
     Dosage: 500 MG, TID
  18. ALBUTEROL SULFATE [Concomitant]
     Dosage: UNK UNK, UNK
  19. CLOBETASOL PROPIONATE [Concomitant]
     Dosage: UNK UNK, UNK
  20. CALCIUM FOLINATE [Concomitant]
     Dosage: 5 MG, QWK
     Route: 048
  21. METFORMIN HYDROCHLORIDE [Concomitant]
     Dosage: 500 MG, BID
  22. LEVOTHYROXINE SODIUM [Concomitant]
     Dosage: 100 A?G, QD
     Route: 048
  23. AUGMENTIN '125' [Concomitant]
     Dosage: UNK UNK, UNK
     Route: 048

REACTIONS (15)
  - COUGH [None]
  - DIZZINESS [None]
  - DRUG INEFFECTIVE [None]
  - DYSPHONIA [None]
  - FATIGUE [None]
  - INJECTION SITE ANAESTHESIA [None]
  - INJECTION SITE ERYTHEMA [None]
  - INJECTION SITE HAEMATOMA [None]
  - INJECTION SITE PAIN [None]
  - INJECTION SITE SWELLING [None]
  - PAIN [None]
  - PALPITATIONS [None]
  - PARAESTHESIA [None]
  - PYREXIA [None]
  - UPPER RESPIRATORY TRACT INFECTION [None]
